FAERS Safety Report 7676398-8 (Version None)
Quarter: 2011Q3

REPORT INFORMATION
  Report Type: 
  Country: None (occurrence: None)
  Receive Date: 20110811
  Receipt Date: 20110809
  Transmission Date: 20111222
  Serious: No
  Sender: FDA-Public Use
  Company Number: US-PFIZER INC-2011183382

PATIENT
  Sex: Female
  Weight: 66.667 kg

DRUGS (1)
  1. ADVIL PM [Suspect]
     Indication: INFLAMMATION
     Dosage: 600 MG, 2X/DAY
     Route: 048
     Dates: start: 20110806, end: 20110809

REACTIONS (4)
  - LACRIMATION INCREASED [None]
  - SOMNOLENCE [None]
  - WRONG DRUG ADMINISTERED [None]
  - MALAISE [None]
